FAERS Safety Report 7825130-3 (Version None)
Quarter: 2011Q4

REPORT INFORMATION
  Report Type: 
  Country: None (occurrence: None)
  Receive Date: 20111019
  Receipt Date: 20111011
  Transmission Date: 20120403
  Serious: Yes (Hospitalization, Other)
  Sender: FDA-Public Use
  Company Number: TW-JNJFOC-20111007217

PATIENT
  Age: 23 Year
  Sex: Female
  Weight: 56 kg

DRUGS (6)
  1. DIPHENHYDRAMINE HCL [Suspect]
     Indication: PRODUCT USED FOR UNKNOWN INDICATION
     Dosage: 1 AMP ST AND PRN
     Route: 050
  2. DIPHENHYDRAMINE HCL [Suspect]
     Dosage: ST
     Route: 050
     Dates: start: 20110424
  3. ULTRACET [Suspect]
     Dosage: 6 HOUR
     Route: 048
     Dates: start: 20110428, end: 20110501
  4. DIPHENHYDRAMINE HCL [Suspect]
     Dosage: 1 AMP ST
     Route: 050
  5. ULTRACET [Suspect]
     Indication: PAIN
     Dosage: 6 HOUR
     Route: 048
     Dates: start: 20110417, end: 20110423
  6. ACETAMINOPHEN [Suspect]
     Indication: PRODUCT USED FOR UNKNOWN INDICATION
     Route: 065
     Dates: start: 20110424

REACTIONS (1)
  - RASH PRURITIC [None]
